FAERS Safety Report 9528082 (Version 1)
Quarter: 2013Q1

REPORT INFORMATION
  Report Type: Spontaneous
  Country: US (occurrence: None)
  Receive Date: 20130329
  Receipt Date: 20130329
  Transmission Date: 20140127
  Serious: Yes (Other)
  Sender: FDA-Public Use
  Company Number: 1000042413

PATIENT
  Age: 86 Year
  Sex: Male

DRUGS (5)
  1. LINZESS [Suspect]
     Indication: IRRITABLE BOWEL SYNDROME
     Dosage: 145 MCG (145 MCG,1 IN 1 D),ORAL
     Route: 048
     Dates: start: 20130131, end: 20130201
  2. LINZESS [Suspect]
     Indication: IRRITABLE BOWEL SYNDROME
     Dosage: 145 MCG (145 MCG,1 IN 1 D),ORAL
     Route: 048
     Dates: start: 20130202, end: 20130203
  3. ACIPHEX (RABEPRAZOLE SODIUM) (RABEPRAZOLE SODIUM) [Concomitant]
  4. BABY ASPIRIN (ACETYLSALICYLIC ACID) (ACETYLSALICYLIC ACID)? [Concomitant]
  5. CALCIUM (CALCIUM) (CALCIUM) [Concomitant]

REACTIONS (1)
  - Nausea [None]
